FAERS Safety Report 16750914 (Version 1)
Quarter: 2019Q3

REPORT INFORMATION
  Report Type: Spontaneous
  Country: US (occurrence: US)
  Receive Date: 20190828
  Receipt Date: 20190828
  Transmission Date: 20191005
  Serious: Yes (Death)
  Sender: FDA-Public Use
  Company Number: US-JNJFOC-20190823850

PATIENT
  Age: 22 Year
  Sex: Male

DRUGS (6)
  1. SEROQUEL [Concomitant]
     Active Substance: QUETIAPINE FUMARATE
     Indication: INSOMNIA
     Dosage: REPORTED AS 50 MG TB24; 3 TABLETS EVERY MORNING
  2. PROZAC [Concomitant]
     Active Substance: FLUOXETINE HYDROCHLORIDE
     Indication: MAJOR DEPRESSION
  3. SPRAVATO [Suspect]
     Active Substance: ESKETAMINE
     Indication: MAJOR DEPRESSION
     Dates: start: 20190611, end: 20190807
  4. NEURONTIN [Concomitant]
     Active Substance: GABAPENTIN
     Indication: GENERALISED ANXIETY DISORDER
     Dosage: 1 TABLET UP TO 4 TIMES DAILY AS NEEDED
     Route: 048
  5. LAMICTAL [Concomitant]
     Active Substance: LAMOTRIGINE
     Indication: MAJOR DEPRESSION
     Dosage: 1 1/2 TABLETS DAILY
  6. ATARAX [Concomitant]
     Active Substance: HYDROXYZINE HYDROCHLORIDE
     Dosage: 1 TABLET THREE TIMES DAILY AS NEEDED

REACTIONS (2)
  - Sedation [Recovered/Resolved]
  - Suspected suicide [Fatal]

NARRATIVE: CASE EVENT DATE: 201908
